FAERS Safety Report 8272812 (Version 5)
Quarter: 2013Q1

REPORT INFORMATION
  Report Type: Spontaneous
  Country: US (occurrence: US)
  Receive Date: 20111202
  Receipt Date: 20130312
  Transmission Date: 20140127
  Serious: Yes (Hospitalization, Other)
  Sender: FDA-Public Use
  Company Number: PHEH2011US008605

PATIENT
  Sex: Female

DRUGS (8)
  1. TASIGNA [Suspect]
     Indication: CHRONIC MYELOID LEUKAEMIA
     Dosage: 300 MG, BID
     Route: 048
     Dates: start: 20111028
  2. TASIGNA [Suspect]
     Dosage: 300 MG, Q12H
     Route: 048
     Dates: start: 20120731
  3. TRICOR [Concomitant]
     Dosage: 145 MG, QD
     Dates: start: 20000101
  4. ZIAC [Concomitant]
     Dosage: 5 MG, QD
     Dates: start: 20040101
  5. NEURONTIN [Concomitant]
     Dosage: 300 NG, QD
     Dates: start: 20011111
  6. VITAMIN B12 [Concomitant]
     Dosage: 1000 UG, QD
  7. PREDNISONE [Concomitant]
  8. METHOTREXATE [Concomitant]

REACTIONS (10)
  - Lumbar spinal stenosis [Unknown]
  - Rheumatoid arthritis [Not Recovered/Not Resolved]
  - Polyneuropathy [Not Recovered/Not Resolved]
  - General physical health deterioration [Not Recovered/Not Resolved]
  - Pain in extremity [Not Recovered/Not Resolved]
  - Discomfort [Not Recovered/Not Resolved]
  - Paraesthesia [Not Recovered/Not Resolved]
  - Local swelling [Not Recovered/Not Resolved]
  - Thyroid neoplasm [Not Recovered/Not Resolved]
  - Diabetes mellitus [Not Recovered/Not Resolved]
